FAERS Safety Report 11415244 (Version 1)
Quarter: 2015Q3

REPORT INFORMATION
  Report Type: Spontaneous
  Country: RO (occurrence: RO)
  Receive Date: 20150825
  Receipt Date: 20150825
  Transmission Date: 20151125
  Serious: Yes (Death, Other)
  Sender: FDA-Public Use
  Company Number: RO-ACTAVIS-2015-17415

PATIENT
  Age: 78 Year

DRUGS (3)
  1. COLISTIN (UNKNOWN) [Suspect]
     Active Substance: COLISTIN
     Indication: CLOSTRIDIUM DIFFICILE COLITIS
     Dosage: UNK
     Route: 065
  2. LEVOFLOXACIN (UNKNOWN) [Suspect]
     Active Substance: LEVOFLOXACIN
     Indication: CLOSTRIDIUM DIFFICILE COLITIS
     Dosage: UNK
     Route: 065
  3. MEROPENEM (UNKNOWN) [Suspect]
     Active Substance: MEROPENEM
     Indication: CLOSTRIDIUM DIFFICILE COLITIS
     Dosage: UNK
     Route: 065

REACTIONS (2)
  - Megacolon [Fatal]
  - Pathogen resistance [Fatal]
